FAERS Safety Report 6866058-5 (Version None)
Quarter: 2010Q2

REPORT INFORMATION
  Report Type: 
  Country: None (occurrence: None)
  Receive Date: 20100607
  Receipt Date: 20090109
  Transmission Date: 20101027
  Serious: No
  Sender: FDA-Public Use
  Company Number: 2009-01016

PATIENT
  Age: 62 Year
  Sex: Female
  Weight: 60.3284 kg

DRUGS (6)
  1. ZICAM COLD REMEDY NASAL GEL [Suspect]
     Indication: NASOPHARYNGITIS
     Dosage: MANY YEARS
  2. BONIVA [Concomitant]
  3. LORATADINE [Concomitant]
  4. ZANTAC [Concomitant]
  5. HYDROCHLOROTHIAZIDE [Concomitant]
  6. ATENOLOL [Concomitant]

REACTIONS (1)
  - ANOSMIA [None]
